FAERS Safety Report 21112741 (Version 1)
Quarter: 2022Q3

REPORT INFORMATION
  Report Type: Spontaneous
  Country: US (occurrence: None)
  Receive Date: 20220721
  Receipt Date: 20220721
  Transmission Date: 20221027
  Serious: Yes (Hospitalization)
  Sender: FDA-Public Use
  Company Number: None

PATIENT
  Age: 71 Year
  Sex: Male
  Weight: 130 kg

DRUGS (1)
  1. NIRMATRELVIR\RITONAVIR [Suspect]
     Active Substance: NIRMATRELVIR\RITONAVIR
     Indication: COVID-19
     Dosage: OTHER QUANTITY : 150/100 MG;?FREQUENCY : TWICE A DAY;?
     Route: 048
     Dates: start: 20220722

REACTIONS (2)
  - COVID-19 [None]
  - Dyspnoea [None]

NARRATIVE: CASE EVENT DATE: 20210706
